FAERS Safety Report 7345721-6 (Version None)
Quarter: 2011Q1

REPORT INFORMATION
  Report Type: 
  Country: None (occurrence: None)
  Receive Date: 20110310
  Receipt Date: 20110302
  Transmission Date: 20110831
  Serious: Yes (Hospitalization, Other)
  Sender: FDA-Public Use
  Company Number: US-MYLANLABS-2011S1003997

PATIENT
  Sex: Female

DRUGS (6)
  1. ALBUTEROL [Concomitant]
     Indication: ASTHMA
     Route: 055
  2. PRAVASTATIN [Concomitant]
     Indication: BLOOD CHOLESTEROL INCREASED
  3. PROTONIX [Concomitant]
     Indication: GASTRIC DISORDER
  4. AMLODIPINE BESYLATE [Suspect]
     Indication: BLOOD PRESSURE INCREASED
     Route: 048
     Dates: end: 20110214
  5. AMLODIPINE BESYLATE [Suspect]
     Route: 048
     Dates: start: 20110215, end: 20110228
  6. DICLOFENAC [Concomitant]
     Indication: ARTHRITIS

REACTIONS (5)
  - BLOOD PRESSURE INCREASED [None]
  - DRUG INEFFECTIVE [None]
  - CARDIAC INFECTION [None]
  - CHEST PAIN [None]
  - DYSPNOEA [None]
